FAERS Safety Report 22722598 (Version 3)
Quarter: 2023Q4

REPORT INFORMATION
  Report Type: Report from Study
  Country: US (occurrence: CA)
  Receive Date: 20230719
  Receipt Date: 20231214
  Transmission Date: 20240110
  Serious: Yes (Hospitalization, Other)
  Sender: FDA-Public Use
  Company Number: US-SANDOZ-SDZ2023US002768

PATIENT
  Sex: Female
  Weight: 43.991 kg

DRUGS (2)
  1. TREPROSTINIL [Suspect]
     Active Substance: TREPROSTINIL
     Indication: Pulmonary arterial hypertension
     Dosage: 190 NG/KG/MIN
     Route: 042
     Dates: start: 20221110
  2. TADALAFIL [Concomitant]
     Active Substance: TADALAFIL
     Indication: Product used for unknown indication
     Dosage: UNK
     Route: 065

REACTIONS (6)
  - Pulmonary oedema [Unknown]
  - Respiratory failure [Unknown]
  - Fluid retention [Unknown]
  - Paracentesis [Unknown]
  - Right ventricular failure [Unknown]
  - Hypervolaemia [Unknown]
